FAERS Safety Report 20939149 (Version 2)
Quarter: 2022Q3

REPORT INFORMATION
  Report Type: Spontaneous
  Country: US (occurrence: US)
  Receive Date: 20220609
  Receipt Date: 20220707
  Transmission Date: 20221027
  Serious: Yes (Hospitalization)
  Sender: FDA-Public Use
  Company Number: US-MYOVANT SCIENCES GMBH-2022MYSCI0600069

PATIENT
  Sex: Male

DRUGS (2)
  1. ORGOVYX [Suspect]
     Active Substance: RELUGOLIX
     Indication: Prostate cancer
     Dosage: 360 MILLIGRAM, ONE TIME DOSE
     Route: 048
     Dates: start: 20220415, end: 20220415
  2. ORGOVYX [Suspect]
     Active Substance: RELUGOLIX
     Indication: Bladder cancer
     Dosage: 120 MILLIGRAM, QD
     Route: 048
     Dates: start: 20220416

REACTIONS (2)
  - Fluid retention [Unknown]
  - Ureteral stent insertion [Unknown]
